FAERS Safety Report 9457273 (Version 1)
Quarter: 2013Q3

REPORT INFORMATION
  Report Type: Spontaneous
  Country: ES (occurrence: None)
  Receive Date: 20130812
  Receipt Date: 20130812
  Transmission Date: 20140515
  Serious: Yes (Hospitalization)
  Sender: FDA-Public Use
  Company Number: AG-2012-1630

PATIENT
  Age: 82 Year
  Sex: Female

DRUGS (2)
  1. CHLORAMBUCIL [Suspect]
     Indication: CHRONIC LYMPHOCYTIC LEUKAEMIA
     Dates: start: 20120206
  2. RITUXIMAB (RITUXIMAB) [Suspect]
     Dosage: 1 IN 28 DAYS (NOT OTHERWISE SPECIFIED)
     Route: 042
     Dates: start: 20120206

REACTIONS (2)
  - Pyrexia [None]
  - Varicella [None]
